FAERS Safety Report 12417691 (Version 1)
Quarter: 2016Q2

REPORT INFORMATION
  Report Type: Report from Study
  Country: CO (occurrence: CO)
  Receive Date: 20160530
  Receipt Date: 20160530
  Transmission Date: 20160815
  Serious: Yes (Hospitalization, Other)
  Sender: FDA-Public Use
  Company Number: PHHY2016CO021670

PATIENT
  Age: 75 Year
  Sex: Male
  Weight: 46 kg

DRUGS (2)
  1. GLIVEC [Suspect]
     Active Substance: IMATINIB MESYLATE
     Indication: CHRONIC MYELOID LEUKAEMIA
     Dosage: 400 MG, QD (2 YEAR AGO)
     Route: 048
  2. ACETAMINOPHEN. [Concomitant]
     Active Substance: ACETAMINOPHEN
     Indication: PAIN
     Dosage: 500 MG, PRN
     Route: 048

REACTIONS (9)
  - Pyrexia [Unknown]
  - Cough [Unknown]
  - Dizziness [Recovering/Resolving]
  - Pneumonia [Unknown]
  - Arthralgia [Unknown]
  - Bone pain [Unknown]
  - Asphyxia [Unknown]
  - Peripheral swelling [Not Recovered/Not Resolved]
  - Paraesthesia [Recovering/Resolving]

NARRATIVE: CASE EVENT DATE: 20160506
